FAERS Safety Report 6071294-4 (Version None)
Quarter: 2009Q1

REPORT INFORMATION
  Report Type: 
  Country: None (occurrence: None)
  Receive Date: 20090205
  Receipt Date: 20090126
  Transmission Date: 20090719
  Serious: Yes (Other)
  Sender: FDA-Public Use
  Company Number: 040591

PATIENT
  Sex: Male
  Weight: 122.4 kg

DRUGS (9)
  1. AMPHETAMINE AND DEXTROAMPHETAMINE SALTS [Suspect]
     Indication: ATTENTION DEFICIT/HYPERACTIVITY DISORDER
     Dosage: 20 MG, TID, ORAL
     Route: 048
     Dates: start: 20080101
  2. ACIPHEX [Concomitant]
  3. ATENOLOL [Concomitant]
  4. CODEINE SUL TAB [Concomitant]
  5. TRIAMTERENE AND HYDROCHLOROTHIAZIDE [Concomitant]
  6. LISINOPRIL [Concomitant]
  7. SEROQUEL [Concomitant]
  8. SYNTHROID [Concomitant]
  9. XANAX [Concomitant]

REACTIONS (8)
  - ANXIETY [None]
  - CHEST DISCOMFORT [None]
  - HEART RATE IRREGULAR [None]
  - HOSTILITY [None]
  - LOGORRHOEA [None]
  - MOOD SWINGS [None]
  - PARANOIA [None]
  - THINKING ABNORMAL [None]
